FAERS Safety Report 10525501 (Version 1)
Quarter: 2014Q4

REPORT INFORMATION
  Report Type: Spontaneous
  Country: DE (occurrence: DE)
  Receive Date: 20141017
  Receipt Date: 20141017
  Transmission Date: 20150528
  Serious: Yes (Other)
  Sender: FDA-Public Use
  Company Number: DE-PFIZER INC-2014282486

PATIENT
  Sex: Female

DRUGS (3)
  1. UNACID PD [Suspect]
     Active Substance: SULTAMICILLIN TOSYLATE
     Indication: GASTRITIS
     Dosage: UNK
  2. UNACID [Suspect]
     Active Substance: AMPICILLIN SODIUM\SULBACTAM SODIUM
     Indication: GASTRITIS
     Dosage: UNK
  3. DOXYCYCLINE. [Concomitant]
     Active Substance: DOXYCYCLINE
     Indication: GASTRITIS
     Dosage: UNK

REACTIONS (1)
  - Chlamydial infection [Unknown]
